FAERS Safety Report 6215371-3 (Version None)
Quarter: 2009Q2

REPORT INFORMATION
  Report Type: 
  Country: None (occurrence: None)
  Receive Date: 20090604
  Receipt Date: 20090527
  Transmission Date: 20091009
  Serious: Yes (Hospitalization)
  Sender: FDA-Public Use
  Company Number: PHHO2009FR01647

PATIENT
  Sex: Male
  Weight: 69.3 kg

DRUGS (6)
  1. ERL 080A ERL+TAB [Suspect]
     Indication: RENAL TRANSPLANT
     Dosage: 2160 MG
     Route: 048
     Dates: start: 20080604, end: 20080814
  2. ERL 080A ERL+TAB [Suspect]
     Dosage: 360 MG, BID
     Route: 048
     Dates: start: 20080815, end: 20080902
  3. ERL 080A ERL+TAB [Suspect]
     Dosage: 720 MG, QD
     Route: 048
     Dates: start: 20080909
  4. CORTICOSTEROIDS [Concomitant]
     Indication: RENAL TRANSPLANT
     Dosage: UNK
  5. BACTRIM [Concomitant]
  6. ROVALCYTE [Concomitant]

REACTIONS (2)
  - AGRANULOCYTOSIS [None]
  - LEUKOPENIA [None]
